FAERS Safety Report 5308818-8 (Version None)
Quarter: 2007Q2

REPORT INFORMATION
  Report Type: 
  Country: None (occurrence: None)
  Receive Date: 20070426
  Receipt Date: 20070417
  Transmission Date: 20071010
  Serious: Yes (Life-Threatening, Other)
  Sender: FDA-Public Use
  Company Number: CA-PFIZER INC-2007025626

PATIENT
  Sex: Male

DRUGS (7)
  1. LYRICA [Suspect]
     Indication: PAIN
     Route: 048
     Dates: start: 20061019, end: 20070326
  2. TENORMIN [Concomitant]
     Indication: MIGRAINE
  3. FLEXERIL [Concomitant]
     Indication: NECK PAIN
     Dates: start: 20061213
  4. EFFEXOR XR [Concomitant]
     Indication: DEPRESSION
     Dates: start: 20060806
  5. CESAMET [Concomitant]
     Indication: NECK PAIN
     Dates: start: 20051214
  6. DILAUDID [Concomitant]
     Indication: NECK PAIN
     Dates: start: 20040101
  7. HYDROMORPH CONTIN [Concomitant]
     Indication: NECK PAIN
     Dates: start: 20040101

REACTIONS (1)
  - GRAND MAL CONVULSION [None]
